FAERS Safety Report 4310988-5 (Version None)
Quarter: 2004Q1

REPORT INFORMATION
  Report Type: 
  Country: None (occurrence: None)
  Receive Date: 20040302
  Receipt Date: 20040302
  Transmission Date: 20041129
  Serious: Yes (Other)
  Sender: FDA-Public Use
  Company Number: None

PATIENT
  Age: 43 Year
  Sex: Female
  Weight: 63.9572 kg

DRUGS (3)
  1. ZOLOFT [Suspect]
     Indication: ANXIETY
     Dosage: 50 MGS QD HS ORAL
     Route: 048
     Dates: start: 20040114, end: 20040227
  2. ZOLOFT [Suspect]
     Indication: DEPRESSION
     Dosage: 50 MGS QD HS ORAL
     Route: 048
     Dates: start: 20040114, end: 20040227
  3. ZOLOFT [Suspect]
     Indication: PREMENSTRUAL SYNDROME
     Dosage: 50 MGS QD HS ORAL
     Route: 048
     Dates: start: 20040114, end: 20040227

REACTIONS (7)
  - CARDIOVASCULAR DISORDER [None]
  - HYPERHIDROSIS [None]
  - HYPOAESTHESIA [None]
  - MUSCULOSKELETAL DISORDER [None]
  - MYALGIA [None]
  - PAIN IN EXTREMITY [None]
  - PARAESTHESIA [None]
